FAERS Safety Report 5088461-9 (Version None)
Quarter: 2006Q3

REPORT INFORMATION
  Report Type: 
  Country: None (occurrence: None)
  Receive Date: 20060823
  Receipt Date: 20060823
  Transmission Date: 20061208
  Serious: Yes (Hospitalization)
  Sender: FDA-Public Use
  Company Number: None

PATIENT
  Age: 39 Year
  Sex: Male

DRUGS (7)
  1. NEVIRAPINE [Suspect]
     Indication: HIV INFECTION
     Dosage: 200MG - 2 TABS  DAILY  PO
     Route: 048
     Dates: start: 20050902, end: 20050919
  2. EPIVIR [Concomitant]
  3. TENOFOVIR [Concomitant]
  4. MUPIROCIN [Concomitant]
  5. ZOLOFT [Concomitant]
  6. BACTRIM [Concomitant]
  7. ALBUTEROL [Concomitant]

REACTIONS (11)
  - ABDOMINAL PAIN UPPER [None]
  - ALANINE AMINOTRANSFERASE INCREASED [None]
  - ASCITES [None]
  - ASPARTATE AMINOTRANSFERASE INCREASED [None]
  - BLOOD BILIRUBIN INCREASED [None]
  - CHOLELITHIASIS [None]
  - HBV DNA INCREASED [None]
  - HEPATOMEGALY [None]
  - MURPHY'S SIGN POSITIVE [None]
  - NAUSEA [None]
  - VOMITING [None]
